FAERS Safety Report 16916268 (Version 1)
Quarter: 2019Q4

REPORT INFORMATION
  Report Type: Spontaneous
  Country: DE (occurrence: DE)
  Receive Date: 20191014
  Receipt Date: 20191014
  Transmission Date: 20200122
  Serious: Yes (Other)
  Sender: FDA-Public Use
  Company Number: DE-TAKEDA-2019TUS056850

PATIENT
  Age: 69 Year
  Sex: Male

DRUGS (2)
  1. ICLUSIG [Suspect]
     Active Substance: PONATINIB
     Indication: CHRONIC MYELOID LEUKAEMIA
     Dosage: UNK
     Route: 048
     Dates: start: 201507, end: 20170320
  2. ICLUSIG [Suspect]
     Active Substance: PONATINIB
     Dosage: 15 MILLIGRAM
     Route: 048
     Dates: start: 20170707

REACTIONS (5)
  - Ejection fraction decreased [Recovered/Resolved]
  - Oedema peripheral [Recovered/Resolved]
  - Myocardial fibrosis [Unknown]
  - Myocardial ischaemia [Unknown]
  - Off label use [Unknown]

NARRATIVE: CASE EVENT DATE: 201603
